FAERS Safety Report 6145529-3 (Version None)
Quarter: 2009Q2

REPORT INFORMATION
  Report Type: 
  Country: None (occurrence: None)
  Receive Date: 20090402
  Receipt Date: 20090319
  Transmission Date: 20091009
  Serious: Yes (Death)
  Sender: FDA-Public Use
  Company Number: 2007BI019228

PATIENT
  Age: 61 Year
  Sex: Female
  Weight: 85 kg

DRUGS (7)
  1. ZEVALIN [Suspect]
     Indication: BONE MARROW CONDITIONING REGIMEN
     Dosage: 965 MBQ; X1; IV
     Route: 042
     Dates: start: 20051117, end: 20051117
  2. MABTHERA [Concomitant]
  3. CARMUSTINE [Concomitant]
  4. ETOPOSIDE [Concomitant]
  5. CYTARABINE [Concomitant]
  6. MELPHALAN [Concomitant]
  7. NEUPOGEN [Concomitant]

REACTIONS (6)
  - BONE MARROW FAILURE [None]
  - CHRONIC MYELOMONOCYTIC LEUKAEMIA [None]
  - DISEASE PROGRESSION [None]
  - PLEURAL EFFUSION [None]
  - PYREXIA [None]
  - REFRACTORY ANAEMIA WITH AN EXCESS OF BLASTS [None]
